FAERS Safety Report 10242333 (Version 1)
Quarter: 2014Q1

REPORT INFORMATION
  Report Type: Spontaneous
  Country: US (occurrence: None)
  Receive Date: 20140306
  Receipt Date: 20140306
  Transmission Date: 20141002
  Serious: Yes (Other)
  Sender: FDA-Public Use
  Company Number: 163-21880-13060319

PATIENT
  Age: 59 Year
  Sex: Male

DRUGS (7)
  1. REVLIMID (LENALIDOMIDE) (10 MILLIGRAM, CAPSULES) [Suspect]
     Indication: PLASMA CELL MYELOMA
     Dosage: 10 MG, 21 IN 28 D, PO
     Route: 048
     Dates: start: 20130526, end: 20130531
  2. AMLODIPINE [Concomitant]
  3. CRESTOR (ROSUVASTATIN) [Concomitant]
  4. LEVOTHYROXINE [Concomitant]
  5. FE SO4 (FERROUS SULFATE) [Concomitant]
  6. CALTRATE (CALCIUM CARBONATE) [Concomitant]
  7. ASA (ACETYLSALICYLIC ACID) [Concomitant]

REACTIONS (1)
  - Laboratory test abnormal [None]
